FAERS Safety Report 4908397-0 (Version None)
Quarter: 2006Q1

REPORT INFORMATION
  Report Type: 
  Country: None (occurrence: None)
  Receive Date: 20060210
  Receipt Date: 20030617
  Transmission Date: 20060701
  Serious: No
  Sender: FDA-Public Use
  Company Number: US-GLAXOSMITHKLINE-A0412952A

PATIENT
  Age: 50 Year
  Sex: Male

DRUGS (3)
  1. PAXIL CR [Suspect]
     Indication: ANXIETY
     Dosage: 12.5MG PER DAY
     Route: 048
     Dates: start: 20030616
  2. PAROXETINE HCL [Suspect]
     Indication: DEPRESSION
     Route: 048
     Dates: start: 20050515
  3. XANAX [Concomitant]

REACTIONS (7)
  - AGITATION [None]
  - DRUG INEFFECTIVE [None]
  - HEADACHE [None]
  - HOSTILITY [None]
  - NAUSEA [None]
  - PARANOIA [None]
  - SOMNOLENCE [None]
